FAERS Safety Report 26152034 (Version 1)
Quarter: 2025Q4

REPORT INFORMATION
  Report Type: Spontaneous
  Country: KR (occurrence: KR)
  Receive Date: 20251214
  Receipt Date: 20251214
  Transmission Date: 20260118
  Serious: Yes (Hospitalization, Other)
  Sender: UNICHEM
  Company Number: KR-UNICHEM LABORATORIES LIMITED-UNI-2025-KR-004180

PATIENT

DRUGS (1)
  1. CELECOXIB [Suspect]
     Active Substance: CELECOXIB
     Indication: Arthritis
     Dosage: UNK
     Route: 065

REACTIONS (4)
  - Drug-induced liver injury [Unknown]
  - Toxic epidermal necrolysis [Recovering/Resolving]
  - Hepatitis cholestatic [Unknown]
  - Hepatitis toxic [Unknown]
